FAERS Safety Report 7623776-9 (Version None)
Quarter: 2011Q3

REPORT INFORMATION
  Report Type: 
  Country: None (occurrence: None)
  Receive Date: 20110720
  Receipt Date: 20110711
  Transmission Date: 20111222
  Serious: Yes (Other)
  Sender: FDA-Public Use
  Company Number: DE-GLAXOSMITHKLINE-D0071995A

PATIENT

DRUGS (1)
  1. VIANI [Suspect]
     Route: 055

REACTIONS (1)
  - HAEMATOCHEZIA [None]
